FAERS Safety Report 5453048-2 (Version None)
Quarter: 2007Q3

REPORT INFORMATION
  Report Type: 
  Country: None (occurrence: None)
  Receive Date: 20070914
  Receipt Date: 20070906
  Transmission Date: 20080115
  Serious: Yes (Life-Threatening, Other)
  Sender: FDA-Public Use
  Company Number: DE-BOEHRINGER INGELHEIM PHARMACEUTICALS, INC.-2007-DE-05345DE

PATIENT
  Sex: Male
  Weight: 65 kg

DRUGS (8)
  1. BERODUAL N DOSIER-AEROSOL [Suspect]
     Indication: CHRONIC OBSTRUCTIVE PULMONARY DISEASE
     Route: 055
  2. BERODUAL [Suspect]
     Indication: CHRONIC OBSTRUCTIVE PULMONARY DISEASE
     Route: 055
     Dates: start: 20070901, end: 20070902
  3. SPIRIVA [Suspect]
     Indication: CHRONIC OBSTRUCTIVE PULMONARY DISEASE
     Dates: start: 20070801
  4. FORMOTEROL FUMARATE [Concomitant]
     Indication: CHRONIC OBSTRUCTIVE PULMONARY DISEASE
     Dates: start: 20070201
  5. XIPAMID [Concomitant]
     Indication: OEDEMA
     Route: 048
     Dates: start: 20070801
  6. XIPAMID [Concomitant]
     Indication: CARDIAC FAILURE
  7. ATENDRONAT [Concomitant]
     Indication: OSTEOPOROSIS
     Route: 048
     Dates: start: 20070801
  8. MATRIFEN [Concomitant]
     Indication: OSTEOPOROSIS
     Dosage: 12 MCG/HOUR
     Route: 062

REACTIONS (5)
  - ANXIETY [None]
  - BRONCHIAL NEOPLASM [None]
  - DYSPNOEA [None]
  - INSOMNIA [None]
  - TACHYCARDIA [None]
